FAERS Safety Report 9283608 (Version 1)
Quarter: 2013Q2

REPORT INFORMATION
  Report Type: Spontaneous
  Country: NL (occurrence: NL)
  Receive Date: 20130510
  Receipt Date: 20130510
  Transmission Date: 20140414
  Serious: Yes (Life-Threatening)
  Sender: FDA-Public Use
  Company Number: NL-009507513-1305NLD004489

PATIENT
  Age: 69 Year
  Sex: Female

DRUGS (3)
  1. ZOCOR [Suspect]
     Dosage: 1 TIMES PER 1 DAYS 40 MG
     Route: 048
     Dates: start: 20130409, end: 20130412
  2. ASPIRIN [Concomitant]
     Dosage: 1 TIMES PER 1 DAYS 80 MG
     Route: 048
     Dates: start: 20130326
  3. CLOMIPRAMINE HYDROCHLORIDE [Concomitant]
     Dosage: 1 TIMES PER 1 DAYS 25 MG
     Route: 048
     Dates: start: 2009

REACTIONS (12)
  - Suicidal ideation [Recovered/Resolved]
  - Neuralgia [Recovered/Resolved]
  - Anxiety [Recovered/Resolved]
  - Eyelid oedema [Recovered/Resolved]
  - Lip swelling [Recovered/Resolved]
  - Depression [Recovered/Resolved]
  - Swollen tongue [Recovered/Resolved]
  - Asthenia [Recovered/Resolved]
  - Constipation [Recovered/Resolved]
  - Alopecia [Recovered/Resolved]
  - Insomnia [Recovered/Resolved]
  - Dizziness [Recovered/Resolved]
